FAERS Safety Report 23294597 (Version 1)
Quarter: 2023Q4

REPORT INFORMATION
  Report Type: Spontaneous
  Country: US (occurrence: None)
  Receive Date: 20231213
  Receipt Date: 20231213
  Transmission Date: 20240110
  Serious: Yes (Other)
  Sender: FDA-Public Use
  Company Number: None

PATIENT
  Age: 33 Year
  Sex: Male
  Weight: 103 kg

DRUGS (1)
  1. TIANEPTINE [Suspect]
     Active Substance: TIANEPTINE
     Dosage: 400 MG EVERY 2 TO 3 DAYS ORAL
     Route: 048

REACTIONS (7)
  - Self-injurious ideation [None]
  - Drug abuse [None]
  - Drug dependence [None]
  - Incorrect dose administered [None]
  - Hyperhidrosis [None]
  - Chills [None]
  - Tremor [None]

NARRATIVE: CASE EVENT DATE: 20231212
